FAERS Safety Report 24636969 (Version 1)
Quarter: 2024Q4

REPORT INFORMATION
  Report Type: Spontaneous
  Country: US (occurrence: US)
  Receive Date: 20241119
  Receipt Date: 20241119
  Transmission Date: 20250115
  Serious: No
  Sender: MISSION PHARMACAL COMPANY
  Company Number: US-Mission Pharmacal Company-2165326

PATIENT
  Age: 72 Year
  Sex: Male

DRUGS (10)
  1. POTASSIUM CITRATE [Suspect]
     Active Substance: POTASSIUM CITRATE
     Indication: Amino acid metabolism disorder
  2. THIOLA EC [Concomitant]
     Active Substance: TIOPRONIN
     Dates: start: 20190820
  3. IRBESARTAN [Concomitant]
     Active Substance: IRBESARTAN
  4. TAMSULOSIN HYDROCHLORIDE [Concomitant]
     Active Substance: TAMSULOSIN HYDROCHLORIDE
  5. HYDROCHLOROTHIAZIDE [Concomitant]
     Active Substance: HYDROCHLOROTHIAZIDE
  6. traMADol HCl ER [Concomitant]
  7. LIPITOR [Concomitant]
     Active Substance: ATORVASTATIN CALCIUM
  8. OMEPRAZOLE [Concomitant]
     Active Substance: OMEPRAZOLE
  9. Fish Oil Extra Strength [Concomitant]
  10. Multivitamin Adult [Concomitant]

REACTIONS (2)
  - Drug ineffective [Unknown]
  - Urine odour abnormal [Unknown]
